FAERS Safety Report 6104134-5 (Version None)
Quarter: 2009Q1

REPORT INFORMATION
  Report Type: 
  Country: None (occurrence: None)
  Receive Date: 20090305
  Receipt Date: 20090225
  Transmission Date: 20090719
  Serious: Yes (Other)
  Sender: FDA-Public Use
  Company Number: US-ELI_LILLY_AND_COMPANY-US200902007344

PATIENT
  Age: 77 Year
  Sex: Female

DRUGS (1)
  1. HUMALOG MIX 50/50 [Suspect]

REACTIONS (2)
  - CONTUSION [None]
  - CONVULSION [None]
